FAERS Safety Report 9659880 (Version 1)
Quarter: 2013Q4

REPORT INFORMATION
  Report Type: Spontaneous
  Country: US (occurrence: US)
  Receive Date: 20131031
  Receipt Date: 20131031
  Transmission Date: 20140711
  Serious: No
  Sender: FDA-Public Use
  Company Number: US-BAYER-2013-132578

PATIENT
  Age: 43 Year
  Sex: Male

DRUGS (1)
  1. ULTRAVIST INJECTION [Suspect]
     Indication: COMPUTERISED TOMOGRAM
     Dosage: 150 ML, ONCE
     Route: 042
     Dates: start: 20131029, end: 20131029

REACTIONS (3)
  - Urticaria [Recovered/Resolved]
  - Throat tightness [Recovered/Resolved]
  - Dyspnoea [Recovered/Resolved]
